FAERS Safety Report 5274609-X (Version None)
Quarter: 2007Q1

REPORT INFORMATION
  Report Type: 
  Country: None (occurrence: None)
  Receive Date: 20070320
  Receipt Date: 20070312
  Transmission Date: 20070707
  Serious: Yes (Hospitalization)
  Sender: FDA-Public Use
  Company Number: 237859

PATIENT
  Age: 59 Year
  Sex: Female

DRUGS (14)
  1. XOLAIR [Suspect]
     Indication: ASTHMA
     Dosage: 300 MG, Q2W, UNK
     Dates: start: 20040101
  2. TYLENOL #3 (UNITED STATES) (ACETAMINOPHEN, CODEINE PHOSPHATE) [Concomitant]
  3. PREMARIN [Concomitant]
  4. SINGULAIR [Concomitant]
  5. XOPENEX [Concomitant]
  6. ADVAIR DISKUS 100/50 [Concomitant]
  7. PREVACID [Concomitant]
  8. ZYRTEC-D 12 HOUR [Concomitant]
  9. PREDNISONE TAB [Concomitant]
  10. FLONASE [Concomitant]
  11. LASIX [Concomitant]
  12. SYNTHROID [Concomitant]
  13. POTASSIUM (POTASSIUM NOS) [Concomitant]
  14. LEVAQUIN [Concomitant]

REACTIONS (2)
  - BRONCHITIS [None]
  - DIARRHOEA [None]
